FAERS Safety Report 11341973 (Version 1)
Quarter: 2015Q3

REPORT INFORMATION
  Report Type: Spontaneous
  Country: CA (occurrence: CA)
  Receive Date: 20150805
  Receipt Date: 20150805
  Transmission Date: 20151125
  Serious: Yes (Other)
  Sender: FDA-Public Use
  Company Number: CA-JNJFOC-20150718971

PATIENT
  Age: 53 Year
  Sex: Female
  Weight: 71 kg

DRUGS (1)
  1. CAELYX [Suspect]
     Active Substance: DOXORUBICIN HYDROCHLORIDE
     Indication: PERITONEAL DISORDER
     Dosage: CAELYX SINGLE USEVIALS. 20MG/10ML AND50MG/25ML.PEG.LIPOSOMALSUSPENSION.
     Route: 042

REACTIONS (7)
  - Off label use [Unknown]
  - Vomiting [Recovered/Resolved]
  - Blood pressure increased [Recovered/Resolved]
  - Erythema [Recovered/Resolved]
  - Urticaria [Recovered/Resolved]
  - Pruritus [Recovered/Resolved]
  - Infusion related reaction [Recovered/Resolved]
